FAERS Safety Report 17500237 (Version 4)
Quarter: 2025Q3

REPORT INFORMATION
  Report Type: Spontaneous
  Country: EU (occurrence: EU)
  Receive Date: 20200305
  Receipt Date: 20250828
  Transmission Date: 20251020
  Serious: Yes (Death, Hospitalization)
  Sender: CELLTRION
  Company Number: EU-CELLTRION INC.-2020DE020149

PATIENT

DRUGS (11)
  1. RITUXIMAB [Suspect]
     Active Substance: RITUXIMAB
     Indication: Post transplant lymphoproliferative disorder
     Route: 065
  2. RITUXIMAB [Suspect]
     Active Substance: RITUXIMAB
     Indication: Plasma cell myeloma
     Route: 065
  3. RITUXIMAB [Suspect]
     Active Substance: RITUXIMAB
     Route: 065
  4. RITUXIMAB [Suspect]
     Active Substance: RITUXIMAB
  5. METHYLPREDNISOLONE [Suspect]
     Active Substance: METHYLPREDNISOLONE
     Indication: Post transplant lymphoproliferative disorder
     Dosage: 2 MG/KG BIWEEKLY
     Route: 065
  6. VINCRISTINE [Suspect]
     Active Substance: VINCRISTINE
     Indication: Post transplant lymphoproliferative disorder
     Route: 065
  7. DARZALEX [Suspect]
     Active Substance: DARATUMUMAB
     Indication: Post transplant lymphoproliferative disorder
     Dosage: 8 MG/KG BIWEEKLY ON DAY 6
  8. DARZALEX [Suspect]
     Active Substance: DARATUMUMAB
     Indication: Plasma cell myeloma
     Dosage: 8 MG/KG BIWEEKLY ON DAY 7
  9. DARZALEX [Suspect]
     Active Substance: DARATUMUMAB
     Dosage: 8 MG/KG, EVERY 2 WEEKS (ADMINISTRATED ON DAY 6 AND 7, ADDITIONAL INFO: INFUSION; OFF LABEL USE)
  10. DARZALEX [Suspect]
     Active Substance: DARATUMUMAB
     Route: 065
  11. CYCLOPHOSPHAMIDE [Concomitant]
     Active Substance: CYCLOPHOSPHAMIDE
     Indication: Post transplant lymphoproliferative disorder
     Route: 065

REACTIONS (11)
  - Disease progression [Fatal]
  - Post transplant lymphoproliferative disorder [Fatal]
  - Drug ineffective [Unknown]
  - Blood lactate dehydrogenase [Unknown]
  - Dyspnoea [Unknown]
  - Pyrexia [Unknown]
  - Fatigue [Unknown]
  - Lymphadenopathy [Unknown]
  - Lymphadenopathy [Unknown]
  - Off label use [Unknown]
  - Product use in unapproved indication [Unknown]
